FAERS Safety Report 21244945 (Version 1)
Quarter: 2022Q3

REPORT INFORMATION
  Report Type: Spontaneous
  Country: US (occurrence: US)
  Receive Date: 20220823
  Receipt Date: 20220823
  Transmission Date: 20221026
  Serious: Yes (Other)
  Sender: FDA-Public Use
  Company Number: US-AMERICAN REGENT INC-2022002423

PATIENT
  Sex: Male

DRUGS (7)
  1. VASOPRESSIN [Suspect]
     Active Substance: VASOPRESSIN
     Indication: Cardiogenic shock
     Dosage: UNK
     Route: 065
  2. EPINEPHRINE [Suspect]
     Active Substance: EPINEPHRINE
     Indication: Cardiogenic shock
     Dosage: UNK
     Route: 065
  3. PHENYLEPHRINE HCL [Suspect]
     Active Substance: PHENYLEPHRINE HYDROCHLORIDE
     Indication: Cardiogenic shock
     Dosage: UNK
     Route: 065
  4. NOREPINEPHRINE [Suspect]
     Active Substance: NOREPINEPHRINE
     Indication: Cardiogenic shock
     Dosage: UNK
     Route: 065
  5. REMDESIVIR [Concomitant]
     Active Substance: REMDESIVIR
     Indication: COVID-19
     Dosage: UNK
     Route: 065
  6. DEXAMETHASONE [Concomitant]
     Active Substance: DEXAMETHASONE
     Indication: COVID-19
     Dosage: UNK
     Route: 065
  7. TOCILIZUMAB [Concomitant]
     Active Substance: TOCILIZUMAB
     Indication: COVID-19
     Dosage: UNK
     Route: 065

REACTIONS (3)
  - Cardiogenic shock [Recovered/Resolved]
  - Drug ineffective [Recovered/Resolved]
  - Product use in unapproved indication [Unknown]
